FAERS Safety Report 9224404 (Version 1)
Quarter: 2013Q2

REPORT INFORMATION
  Report Type: Spontaneous
  Country: US (occurrence: None)
  Receive Date: 20130409
  Receipt Date: 20130409
  Transmission Date: 20140414
  Serious: No
  Sender: FDA-Public Use
  Company Number: None

PATIENT
  Age: 55 Year
  Sex: Female
  Weight: 62.6 kg

DRUGS (2)
  1. NEURONTIN [Suspect]
     Dates: start: 201302
  2. LYRICA [Suspect]
     Dates: start: 201303

REACTIONS (1)
  - Urinary retention [None]
